FAERS Safety Report 6837783-7 (Version None)
Quarter: 2010Q3

REPORT INFORMATION
  Report Type: 
  Country: None (occurrence: None)
  Receive Date: 20100713
  Receipt Date: 20070522
  Transmission Date: 20110219
  Serious: Yes (Hospitalization, Other)
  Sender: FDA-Public Use
  Company Number: US-PFIZER INC-2007041169

PATIENT
  Sex: Male
  Weight: 72.727 kg

DRUGS (10)
  1. CHANTIX [Suspect]
     Indication: SMOKING CESSATION THERAPY
     Dates: start: 20070201, end: 20070510
  2. LIPITOR [Concomitant]
  3. TRICOR [Concomitant]
  4. FIORICET [Concomitant]
  5. AMITRIPTYLINE HYDROCHLORIDE [Concomitant]
  6. VALIUM [Concomitant]
  7. PEPCID [Concomitant]
  8. DIGITEK [Concomitant]
  9. PLAVIX [Concomitant]
  10. WARFARIN SODIUM [Concomitant]

REACTIONS (5)
  - ABDOMINAL PAIN UPPER [None]
  - FLATULENCE [None]
  - HEADACHE [None]
  - PANCREATITIS [None]
  - WEIGHT DECREASED [None]
